FAERS Safety Report 15707211 (Version 1)
Quarter: 2018Q4

REPORT INFORMATION
  Report Type: Spontaneous
  Country: SA (occurrence: SA)
  Receive Date: 20181210
  Receipt Date: 20181210
  Transmission Date: 20190205
  Serious: Yes (Hospitalization, Other)
  Sender: FDA-Public Use
  Company Number: SA-AMGEN-SAUSP2018174175

PATIENT
  Age: 16 Year
  Sex: Male
  Weight: 20 kg

DRUGS (4)
  1. FILGRASTIM [Suspect]
     Active Substance: FILGRASTIM
     Indication: NEUTROPENIA
     Dosage: UNK
     Route: 065
  2. DARBEPOETIN ALFA [Suspect]
     Active Substance: DARBEPOETIN ALFA
     Indication: NORMOCHROMIC NORMOCYTIC ANAEMIA
     Dosage: UNK UNK, QMO
     Route: 065
  3. CARNITINE [Concomitant]
     Active Substance: CARNITINE
  4. PROPIMEX-2 [Concomitant]
     Dosage: UNK

REACTIONS (2)
  - Off label use [Unknown]
  - Haemophagocytic lymphohistiocytosis [Recovering/Resolving]
